FAERS Safety Report 11490257 (Version 1)
Quarter: 2015Q3

REPORT INFORMATION
  Report Type: Spontaneous
  Country: CA (occurrence: CA)
  Receive Date: 20150909
  Receipt Date: 20150909
  Transmission Date: 20151125
  Serious: Yes (Hospitalization)
  Sender: FDA-Public Use
  Company Number: CA-TEVA-592029ACC

PATIENT
  Age: 4 Year
  Sex: Female
  Weight: 13 kg

DRUGS (6)
  1. CORTEF [Suspect]
     Active Substance: HYDROCORTISONE
     Indication: LEUKAEMIA
     Dosage: 2 DOSAGE FORMS DAILY;
     Route: 048
  2. DEXAMETHASONE. [Concomitant]
     Active Substance: DEXAMETHASONE
  3. VINCRISTINE SULFATE INJECTION USP [Suspect]
     Active Substance: VINCRISTINE SULFATE
     Indication: LEUKAEMIA
     Route: 042
  4. LAX-A-DAY [Concomitant]
  5. ONCASPAR [Concomitant]
     Active Substance: PEGASPARGASE
     Route: 030
  6. 6-MERCAPTOPURINE [Concomitant]
     Active Substance: MERCAPTOPURINE

REACTIONS (3)
  - Constipation [Recovered/Resolved]
  - Abdominal distension [Recovered/Resolved]
  - Pneumatosis [Recovered/Resolved]
